FAERS Safety Report 8474224-0 (Version None)
Quarter: 2012Q2

REPORT INFORMATION
  Report Type: 
  Country: None (occurrence: None)
  Receive Date: 20120628
  Receipt Date: 20120619
  Transmission Date: 20120825
  Serious: No
  Sender: FDA-Public Use
  Company Number: US-ROXANE LABORATORIES, INC.-2012-RO-01267RO

PATIENT
  Age: 67 Year
  Sex: Female

DRUGS (2)
  1. IPRATROPIUM BROMIDE [Suspect]
     Route: 055
  2. FLUTICASONE PROPIONATE [Suspect]
     Indication: SEASONAL ALLERGY
     Route: 055
     Dates: start: 20111201

REACTIONS (2)
  - WRONG DRUG ADMINISTERED [None]
  - DRUG DISPENSING ERROR [None]
